FAERS Safety Report 8280994-7 (Version None)
Quarter: 2012Q2

REPORT INFORMATION
  Report Type: 
  Country: None (occurrence: None)
  Receive Date: 20120412
  Receipt Date: 20120326
  Transmission Date: 20120825
  Serious: Yes (Hospitalization)
  Sender: FDA-Public Use
  Company Number: CZ-BAXTER-2012BAX000859

PATIENT
  Age: 60 Year
  Sex: Male

DRUGS (1)
  1. PHYSIONEAL 40 GLUCOSE  1,36% W/V / 13,6 MG/ML [Suspect]
     Route: 033

REACTIONS (2)
  - INFECTIOUS PERITONITIS [None]
  - DEVICE LEAKAGE [None]
